FAERS Safety Report 4498534-7 (Version None)
Quarter: 2004Q4

REPORT INFORMATION
  Report Type: 
  Country: None (occurrence: None)
  Receive Date: 20041111
  Receipt Date: 20041102
  Transmission Date: 20050328
  Serious: Yes (Death)
  Sender: FDA-Public Use
  Company Number: US-JNJFOC-20041005751

PATIENT
  Sex: Male
  Weight: 64.3 kg

DRUGS (5)
  1. REMICADE [Suspect]
     Dosage: FROM AGE 16-17 EVERY 6-8 WEEKS GRATER THAN 2 YEARS
     Route: 042
  2. REMICADE [Suspect]
     Indication: CROHN'S DISEASE
     Route: 042
  3. IMURAN [Concomitant]
  4. PREDNISONE [Concomitant]
  5. 6-MP [Concomitant]

REACTIONS (2)
  - BONE MARROW DEPRESSION [None]
  - T-CELL LYMPHOMA RECURRENT [None]
